FAERS Safety Report 7335786-X (Version None)
Quarter: 2011Q1

REPORT INFORMATION
  Report Type: 
  Country: None (occurrence: None)
  Receive Date: 20110302
  Receipt Date: 20110302
  Transmission Date: 20110831
  Serious: Yes (Disabling)
  Sender: FDA-Public Use
  Company Number: None

PATIENT
  Sex: Female
  Weight: 70.5 kg

DRUGS (1)
  1. CIPROFLOXACIN HCL 500 MG NORTHSTAR [Suspect]
     Indication: PNEUMONIA
     Dosage: 500 MG TABS TWICE DAILY ORAL
     Route: 048
     Dates: start: 20101117, end: 20101122

REACTIONS (4)
  - ARTHRALGIA [None]
  - TENDONITIS [None]
  - PAIN IN EXTREMITY [None]
  - MOVEMENT DISORDER [None]
